FAERS Safety Report 5344748-3 (Version None)
Quarter: 2007Q2

REPORT INFORMATION
  Report Type: 
  Country: None (occurrence: None)
  Receive Date: 20070604
  Receipt Date: 20070525
  Transmission Date: 20071010
  Serious: Yes (Hospitalization)
  Sender: FDA-Public Use
  Company Number: GB-ABBOTT-06P-167-0347706-00

PATIENT
  Sex: Male
  Weight: 81 kg

DRUGS (7)
  1. HUMIRA [Suspect]
     Indication: PSORIATIC ARTHROPATHY
     Route: 058
     Dates: start: 20061019
  2. METHOTREXATE [Concomitant]
     Indication: PSORIATIC ARTHROPATHY
     Route: 048
  3. FOLIC ACID [Concomitant]
     Indication: PSORIATIC ARTHROPATHY
     Route: 048
  4. INDOMETHACIN [Concomitant]
     Indication: PSORIATIC ARTHROPATHY
     Route: 048
  5. ATENOLOL [Concomitant]
     Indication: HYPERTENSION
     Route: 048
  6. DILTIAZEM HYDROCHLORIDE [Concomitant]
     Indication: HYPERTENSION
     Route: 048
  7. MEXONIAINE [Concomitant]
     Indication: HYPERTENSION
     Route: 048

REACTIONS (5)
  - COLD SWEAT [None]
  - DIZZINESS [None]
  - MALAISE [None]
  - PALLOR [None]
  - SYNCOPE [None]
